FAERS Safety Report 24896094 (Version 1)
Quarter: 2025Q1

REPORT INFORMATION
  Report Type: Spontaneous
  Country: ES (occurrence: ES)
  Receive Date: 20250128
  Receipt Date: 20250128
  Transmission Date: 20250409
  Serious: Yes (Death)
  Sender: INCYTE
  Company Number: ES-002147023-NVSC2025ES009643

PATIENT

DRUGS (4)
  1. RUXOLITINIB [Suspect]
     Active Substance: RUXOLITINIB
     Indication: Aicardi-Goutieres syndrome
     Dosage: 0.2 MG/KG, QD
     Route: 065
  2. RUXOLITINIB [Suspect]
     Active Substance: RUXOLITINIB
     Dosage: 0.3 MG/KG, QD (INCREASED)
     Route: 065
  3. RUXOLITINIB [Suspect]
     Active Substance: RUXOLITINIB
     Dosage: 0.4 MG/KG, QD (AFTER HYPOTONIA PERSISTED.)
     Route: 065
  4. RUXOLITINIB [Suspect]
     Active Substance: RUXOLITINIB
     Dosage: 0.7 MG/KG, QD (AFTER NEUROLOGICAL PROGRESSION)
     Route: 065

REACTIONS (3)
  - Aicardi-Goutieres syndrome [Fatal]
  - Disease progression [Fatal]
  - Off label use [Unknown]
